FAERS Safety Report 7990118-9 (Version None)
Quarter: 2011Q4

REPORT INFORMATION
  Report Type: 
  Country: None (occurrence: None)
  Receive Date: 20111219
  Receipt Date: 20110718
  Transmission Date: 20120403
  Serious: No
  Sender: FDA-Public Use
  Company Number: US-ASTRAZENECA-2011SE42712

PATIENT
  Age: 51 Year
  Sex: Female
  Weight: 55.3 kg

DRUGS (1)
  1. CRESTOR [Suspect]
     Indication: HYPERCHOLESTEROLAEMIA
     Route: 048
     Dates: start: 20110709, end: 20110716

REACTIONS (7)
  - CHEST PAIN [None]
  - INFLUENZA LIKE ILLNESS [None]
  - HEADACHE [None]
  - ABDOMINAL PAIN [None]
  - ARTHRALGIA [None]
  - MYALGIA [None]
  - PAIN [None]
